FAERS Safety Report 24753036 (Version 1)
Quarter: 2024Q4

REPORT INFORMATION
  Report Type: Spontaneous
  Country: AU (occurrence: AU)
  Receive Date: 20241219
  Receipt Date: 20241219
  Transmission Date: 20250115
  Serious: Yes (Other)
  Sender: CHEPLAPHARM
  Company Number: AU-CHEPLA-2024015806

PATIENT
  Age: 66 Year
  Sex: Male

DRUGS (2)
  1. GANCICLOVIR [Suspect]
     Active Substance: GANCICLOVIR
     Indication: Product used for unknown indication
  2. AXICABTAGENE CILOLEUCEL [Suspect]
     Active Substance: AXICABTAGENE CILOLEUCEL
     Indication: Product used for unknown indication
     Dosage: CYROPRESERVED

REACTIONS (7)
  - B-cell aplasia [Unknown]
  - Cytomegalovirus chorioretinitis [Unknown]
  - Cytomegalovirus infection reactivation [Unknown]
  - Diffuse large B-cell lymphoma recurrent [Unknown]
  - Bone marrow disorder [Unknown]
  - Drug resistance [Unknown]
  - T-lymphocyte count decreased [Unknown]
